FAERS Safety Report 5456963-9 (Version None)
Quarter: 2007Q3

REPORT INFORMATION
  Report Type: 
  Country: None (occurrence: None)
  Receive Date: 20070918
  Receipt Date: 20070228
  Transmission Date: 20080115
  Serious: Yes (Other)
  Sender: FDA-Public Use
  Company Number: US-ASTRAZENECA-2006UW27547

PATIENT
  Sex: Female
  Weight: 109.1 kg

DRUGS (7)
  1. SEROQUEL [Suspect]
     Indication: PARANOIA
     Route: 048
     Dates: start: 20050202, end: 20060101
  2. SEROQUEL [Suspect]
     Indication: BIPOLAR DISORDER
     Route: 048
     Dates: start: 20050202, end: 20060101
  3. SEROQUEL [Suspect]
     Indication: DEPRESSION
     Route: 048
     Dates: start: 20050202, end: 20060101
  4. ABILIFY [Concomitant]
  5. BUSPAR [Concomitant]
  6. GEODON [Concomitant]
  7. DILANTIN [Concomitant]

REACTIONS (2)
  - DIABETES MELLITUS [None]
  - PANCREATITIS [None]
